FAERS Safety Report 6683892-5 (Version None)
Quarter: 2010Q2

REPORT INFORMATION
  Report Type: 
  Country: None (occurrence: None)
  Receive Date: 20100416
  Receipt Date: 20100406
  Transmission Date: 20101027
  Serious: Yes (Hospitalization, Other)
  Sender: FDA-Public Use
  Company Number: US-JNJFOC-20090602820

PATIENT
  Sex: Female

DRUGS (1)
  1. LEVAQUIN [Suspect]
     Indication: LOCALISED INFECTION

REACTIONS (6)
  - FALL [None]
  - GAIT DISTURBANCE [None]
  - PERONEAL NERVE PALSY [None]
  - TENDON INJURY [None]
  - TENDON RUPTURE [None]
  - TENDONITIS [None]
